FAERS Safety Report 5375840-5 (Version None)
Quarter: 2007Q3

REPORT INFORMATION
  Report Type: 
  Country: None (occurrence: None)
  Receive Date: 20070702
  Receipt Date: 20070621
  Transmission Date: 20080115
  Serious: Yes (Other)
  Sender: FDA-Public Use
  Company Number: PHBS2007JP10689

PATIENT
  Age: 6 Month
  Sex: Female

DRUGS (1)
  1. ZADITEN [Suspect]
     Dosage: 0.525 MG, UNK
     Route: 048
     Dates: start: 20070620

REACTIONS (3)
  - ACCIDENTAL OVERDOSE [None]
  - RESPIRATION ABNORMAL [None]
  - VOMITING [None]
